FAERS Safety Report 8458590-8 (Version None)
Quarter: 2012Q2

REPORT INFORMATION
  Report Type: 
  Country: None (occurrence: None)
  Receive Date: 20120622
  Receipt Date: 20120608
  Transmission Date: 20120825
  Serious: Yes (Death, Hospitalization)
  Sender: FDA-Public Use
  Company Number: US-JNJFOC-20120109458

PATIENT
  Sex: Male

DRUGS (16)
  1. CLIMARA [Concomitant]
     Indication: PRODUCT USED FOR UNKNOWN INDICATION
  2. ASCORBIC ACID [Concomitant]
  3. ANTIBIOTICS [Concomitant]
  4. FERROUS SULFATE TAB [Concomitant]
  5. LOVAZA [Concomitant]
  6. VITAMIN A [Concomitant]
  7. PREDNISONE TAB [Concomitant]
  8. CALCIUM [Concomitant]
  9. VITAMIN B-12 [Concomitant]
  10. WARFARIN SODIUM [Concomitant]
  11. PRILOSEC [Concomitant]
  12. HUMIRA [Suspect]
     Indication: CROHN'S DISEASE
     Dosage: START DATE APPROXIMATELY JUNE OR AUGUST
     Dates: start: 20080101, end: 20100201
  13. VITAMIN D [Concomitant]
  14. REMICADE [Suspect]
     Indication: CROHN'S DISEASE
     Dosage: DISCONTINUED JUNE OR AUGUST 2008
     Route: 042
     Dates: end: 20080101
  15. IMURAN [Suspect]
     Indication: CROHN'S DISEASE
     Dates: start: 20080101, end: 20100201
  16. AMITRIPTYLINE HCL [Concomitant]

REACTIONS (1)
  - MYELOID LEUKAEMIA [None]
